FAERS Safety Report 19584799 (Version 1)
Quarter: 2021Q3

REPORT INFORMATION
  Report Type: Spontaneous
  Country: SY (occurrence: SY)
  Receive Date: 20210720
  Receipt Date: 20210720
  Transmission Date: 20211014
  Serious: Yes (Other)
  Sender: FDA-Public Use
  Company Number: SY-ASTRAZENECA-2021A619509

PATIENT
  Age: 67 Year
  Sex: Male
  Weight: 55 kg

DRUGS (1)
  1. SYMBICORT [Suspect]
     Active Substance: BUDESONIDE\FORMOTEROL FUMARATE DIHYDRATE
     Indication: CHRONIC OBSTRUCTIVE PULMONARY DISEASE
     Dosage: 320 UG TWO TIMES A DAY
     Route: 055

REACTIONS (2)
  - Throat tightness [Unknown]
  - Dyspnoea [Unknown]
